FAERS Safety Report 11042964 (Version 1)
Quarter: 2015Q2

REPORT INFORMATION
  Report Type: Spontaneous
  Country: US (occurrence: US)
  Receive Date: 20150417
  Receipt Date: 20150417
  Transmission Date: 20150821
  Serious: No
  Sender: FDA-Public Use
  Company Number: US-009507513-1503USA013124

PATIENT
  Age: 72 Year
  Sex: Male

DRUGS (2)
  1. BELSOMRA [Suspect]
     Active Substance: SUVOREXANT
     Indication: DEPRESSION
     Dosage: 10 MG, ONE TABLET, ONCE DAILY
     Route: 048
     Dates: start: 201503, end: 20150322
  2. NARDIL [Concomitant]
     Active Substance: PHENELZINE SULFATE

REACTIONS (2)
  - Malaise [Recovered/Resolved]
  - Off label use [Unknown]

NARRATIVE: CASE EVENT DATE: 201503
